FAERS Safety Report 7615805-3 (Version None)
Quarter: 2011Q3

REPORT INFORMATION
  Report Type: 
  Country: None (occurrence: None)
  Receive Date: 20110718
  Receipt Date: 20110718
  Transmission Date: 20111222
  Serious: Yes (Hospitalization)
  Sender: FDA-Public Use
  Company Number: None

PATIENT
  Sex: Female
  Weight: 81.4 kg

DRUGS (6)
  1. DOXORUBICIN HYDROCHLORIDE [Suspect]
     Dosage: 76.8 MG
  2. RITUXIMAB (MOAB C2B8 ANTI CD20, CHIMERIC) [Suspect]
     Dosage: 720 MG
  3. PREDNISONE [Suspect]
     Dosage: 1152.5 MG
  4. CYCLOPHOSPHAMIDE [Suspect]
     Dosage: 1440 MG
  5. ETOPOSIDE [Suspect]
     Dosage: 384 MG
  6. VINCRISTINE SULFATE [Suspect]
     Dosage: 3.08 MG

REACTIONS (12)
  - ATRIAL FIBRILLATION [None]
  - DECREASED APPETITE [None]
  - CULTURE URINE POSITIVE [None]
  - DIZZINESS [None]
  - ANTIBIOTIC RESISTANT STAPHYLOCOCCUS TEST POSITIVE [None]
  - CATHETER SITE INFECTION [None]
  - ANAEMIA [None]
  - FATIGUE [None]
  - DIARRHOEA [None]
  - FEBRILE NEUTROPENIA [None]
  - SEPSIS [None]
  - STRESS [None]
